FAERS Safety Report 5321901-6 (Version None)
Quarter: 2007Q2

REPORT INFORMATION
  Report Type: 
  Country: None (occurrence: None)
  Receive Date: 20070510
  Receipt Date: 20070502
  Transmission Date: 20071010
  Serious: Yes (Death, Hospitalization)
  Sender: FDA-Public Use
  Company Number: JP-MERCK-0704USA04517

PATIENT
  Age: 82 Year
  Sex: Female
  Weight: 39 kg

DRUGS (2)
  1. FOSAMAX [Suspect]
     Indication: OSTEOPOROSIS
     Route: 048
     Dates: start: 20061012, end: 20070320
  2. FOSAMAX [Suspect]
     Route: 048
     Dates: start: 20070403, end: 20070412

REACTIONS (5)
  - ANAEMIA [None]
  - BRONCHITIS [None]
  - DEATH [None]
  - HAEMORRHAGE SUBCUTANEOUS [None]
  - PNEUMONIA [None]
